FAERS Safety Report 9580209 (Version 1)
Quarter: 2013Q4

REPORT INFORMATION
  Report Type: Other
  Country: GB (occurrence: GB)
  Receive Date: 20131002
  Receipt Date: 20131002
  Transmission Date: 20140711
  Serious: Yes (Life-Threatening, Hospitalization, Other)
  Sender: FDA-Public Use
  Company Number: GB-TARO PHARMACEUTICALS U.S.A., INC-2013SUN04746

PATIENT
  Age: 80 Year
  Sex: Male

DRUGS (7)
  1. WARFARIN [Suspect]
     Indication: PRODUCT USED FOR UNKNOWN INDICATION
     Dosage: 3.5 MG (3 MG + 0.5 MG), OD
     Route: 048
  2. WARFARIN [Suspect]
     Dosage: 8 MG (3 MG + 5 MG), OD
  3. ATENOLOL [Concomitant]
     Dosage: 25 MG, OD
  4. ATORVASTATIN [Concomitant]
     Dosage: 10 MG, OD
  5. BENDROFLUMETHIAZIDE [Concomitant]
     Dosage: 2.5 MG, OD
  6. MORPHINE SULPHATE [Concomitant]
     Dosage: 30 MG, BID
  7. PARACETAMOL [Concomitant]
     Dosage: 500 MG, UNK

REACTIONS (4)
  - Incorrect dosage administered [Unknown]
  - International normalised ratio increased [Recovered/Resolved]
  - Haematuria [Recovering/Resolving]
  - Accidental overdose [Unknown]
